FAERS Safety Report 13825607 (Version 1)
Quarter: 2017Q3

REPORT INFORMATION
  Report Type: Other
  Country: US (occurrence: US)
  Receive Date: 20170802
  Receipt Date: 20170802
  Transmission Date: 20171127
  Serious: No
  Sender: FDA-Public Use
  Company Number: US-GLENMARK PHARMACEUTICALS-2017GMK028197

PATIENT

DRUGS (1)
  1. OMEPRAZOLE. [Suspect]
     Active Substance: OMEPRAZOLE
     Indication: PRODUCT USED FOR UNKNOWN INDICATION
     Dosage: 2 DF, QD
     Route: 065

REACTIONS (5)
  - Product substitution issue [Unknown]
  - Dysphagia [Recovering/Resolving]
  - Dyspepsia [Recovering/Resolving]
  - Oesophageal pain [Recovered/Resolved]
  - Abdominal pain upper [Recovering/Resolving]
